FAERS Safety Report 11480047 (Version 1)
Quarter: 2015Q3

REPORT INFORMATION
  Report Type: Report from Study
  Country: AU (occurrence: AU)
  Receive Date: 20150909
  Receipt Date: 20150909
  Transmission Date: 20151125
  Serious: Yes (Hospitalization)
  Sender: FDA-Public Use
  Company Number: AU-ABBVIE-12P-008-0918723-00

PATIENT
  Age: 26 Year
  Sex: Male

DRUGS (11)
  1. HUMIRA [Suspect]
     Active Substance: ADALIMUMAB
     Indication: CROHN^S DISEASE
     Route: 058
     Dates: start: 20090622, end: 20090622
  2. HUMIRA [Suspect]
     Active Substance: ADALIMUMAB
     Route: 058
     Dates: start: 2009, end: 2009
  3. HUMIRA [Suspect]
     Active Substance: ADALIMUMAB
     Route: 058
     Dates: end: 20090910
  4. METHOTREXATE [Concomitant]
     Active Substance: METHOTREXATE
     Dates: start: 20100728, end: 20141128
  5. METHOTREXATE [Concomitant]
     Active Substance: METHOTREXATE
     Dates: start: 20100407, end: 20100615
  6. VEDOLIZUMAB/PLACEBO [Concomitant]
     Indication: CROHN^S DISEASE
     Dosage: 300 MG FORTNIGHTLY
     Dates: start: 20091224, end: 20100119
  7. METHOTREXATE [Concomitant]
     Active Substance: METHOTREXATE
     Dates: start: 20100616, end: 20100727
  8. METHOTREXATE [Concomitant]
     Active Substance: METHOTREXATE
     Indication: CROHN^S DISEASE
     Dosage: 25 MG WEEKLY
     Dates: start: 20090923, end: 20091116
  9. METHOTREXATE [Concomitant]
     Active Substance: METHOTREXATE
     Dosage: 20 MG WEEKLY
     Dates: start: 20091116, end: 20091202
  10. METHOTREXATE [Concomitant]
     Active Substance: METHOTREXATE
     Dates: start: 20100316, end: 20100406
  11. FOLIC ACID. [Concomitant]
     Active Substance: FOLIC ACID
     Indication: VITAMIN SUPPLEMENTATION
     Dates: start: 20090923

REACTIONS (1)
  - Crohn^s disease [Unknown]

NARRATIVE: CASE EVENT DATE: 20100201
